FAERS Safety Report 9224126 (Version 1)
Quarter: 2013Q2

REPORT INFORMATION
  Report Type: Spontaneous
  Country: US (occurrence: None)
  Receive Date: 20130409
  Receipt Date: 20130409
  Transmission Date: 20140414
  Serious: Yes (Other)
  Sender: FDA-Public Use
  Company Number: None

PATIENT
  Age: 65 Year
  Sex: Female
  Weight: 67.59 kg

DRUGS (1)
  1. CIPROFLOXACIN HCL [Suspect]
     Indication: URINARY TRACT INFECTION
     Dosage: 1 TABLET  2 TIMES PER DAY PO
     Route: 048
     Dates: start: 20130403, end: 20130404

REACTIONS (4)
  - Myalgia [None]
  - Bone pain [None]
  - Arthralgia [None]
  - Insomnia [None]
